FAERS Safety Report 13406108 (Version 2)
Quarter: 2017Q2

REPORT INFORMATION
  Report Type: Spontaneous
  Country: US (occurrence: US)
  Receive Date: 20170405
  Receipt Date: 20170522
  Transmission Date: 20170830
  Serious: No
  Sender: FDA-Public Use
  Company Number: US-009507513-1703USA008751

PATIENT
  Age: 22 Year
  Sex: Female
  Weight: 70.3 kg

DRUGS (1)
  1. NEXPLANON [Suspect]
     Active Substance: ETONOGESTREL
     Indication: CONTRACEPTION
     Dosage: 1 DF, EVERY THREE YEARS, IN THE LEFT ARM
     Route: 059
     Dates: start: 20161222

REACTIONS (11)
  - Device breakage [Unknown]
  - Implant site scar [Not Recovered/Not Resolved]
  - Migration of implanted drug [Unknown]
  - Implant site irritation [Not Recovered/Not Resolved]
  - Implant site induration [Unknown]
  - Implant site pruritus [Unknown]
  - Hyperkeratosis [Unknown]
  - Device deployment issue [Not Recovered/Not Resolved]
  - Implant site erythema [Unknown]
  - Implant site fibrosis [Unknown]
  - Pain [Unknown]

NARRATIVE: CASE EVENT DATE: 201612
